FAERS Safety Report 24292407 (Version 3)
Quarter: 2024Q4

REPORT INFORMATION
  Report Type: Spontaneous
  Country: GB (occurrence: GB)
  Receive Date: 20240906
  Receipt Date: 20241113
  Transmission Date: 20250114
  Serious: Yes (Death, Hospitalization, Other)
  Sender: SANOFI AVENTIS
  Company Number: GB-SA-2024SA257769

PATIENT
  Sex: Male

DRUGS (5)
  1. DUPIXENT [Suspect]
     Active Substance: DUPILUMAB
     Indication: Dermatitis atopic
     Dosage: UNK
     Dates: start: 201905
  2. METHOTREXATE [Concomitant]
     Active Substance: METHOTREXATE
  3. PREDNISONE [Concomitant]
     Active Substance: PREDNISONE
  4. AZATHIOPRINE [Concomitant]
     Active Substance: AZATHIOPRINE
  5. HYDROCORTISONE [Concomitant]
     Active Substance: HYDROCORTISONE
     Dosage: UNK

REACTIONS (6)
  - Sepsis [Fatal]
  - Loss of consciousness [Fatal]
  - Weight decreased [Fatal]
  - Decreased appetite [Fatal]
  - Epidermal necrosis [Not Recovered/Not Resolved]
  - Asthenia [Unknown]

NARRATIVE: CASE EVENT DATE: 20200101
